FAERS Safety Report 10188913 (Version 1)
Quarter: 2014Q2

REPORT INFORMATION
  Report Type: Spontaneous
  Country: US (occurrence: US)
  Receive Date: 20140522
  Receipt Date: 20140522
  Transmission Date: 20141212
  Serious: No
  Sender: FDA-Public Use
  Company Number: US-ZOGENIX, INC.-2014ZX000101

PATIENT
  Age: 32 Year
  Sex: Male

DRUGS (3)
  1. ZOHYDRO ER [Suspect]
     Indication: PAIN
     Route: 048
     Dates: start: 20140411, end: 20140411
  2. HYDROCODONE [Concomitant]
     Indication: BACK PAIN
     Dosage: PT TOOK 2 10/300 TABS OF HYDROCODONE.
     Route: 048
  3. NORVIR [Concomitant]
     Indication: HIV INFECTION

REACTIONS (1)
  - Drug ineffective [Recovered/Resolved]
